FAERS Safety Report 5674866-1 (Version None)
Quarter: 2008Q1

REPORT INFORMATION
  Report Type: 
  Country: None (occurrence: None)
  Receive Date: 20080319
  Receipt Date: 20080319
  Transmission Date: 20080703
  Serious: Yes (Hospitalization)
  Sender: FDA-Public Use
  Company Number: None

PATIENT
  Age: 76 Year
  Sex: Male
  Weight: 86.1 kg

DRUGS (1)
  1. BENAZEPRIL HCL [Suspect]
     Indication: HYPERTENSION
     Dosage: 20MG DAILY PO UNKNOWN OF START
     Route: 048
     Dates: start: 20040101, end: 20080317

REACTIONS (3)
  - CIRCUMORAL OEDEMA [None]
  - DYSPNOEA [None]
  - SWOLLEN TONGUE [None]
